FAERS Safety Report 9407272 (Version 1)
Quarter: 2013Q3

REPORT INFORMATION
  Report Type: Report from Study
  Country: BR (occurrence: BR)
  Receive Date: 20130718
  Receipt Date: 20130718
  Transmission Date: 20140515
  Serious: Yes (Disabling)
  Sender: FDA-Public Use
  Company Number: BR-BAYER-2013-085247

PATIENT
  Sex: Male

DRUGS (5)
  1. BETAFERON [Suspect]
     Indication: MULTIPLE SCLEROSIS
     Dosage: 1 ML, QOD
     Route: 058
     Dates: start: 2005
  2. IBUPROFEN [Concomitant]
     Indication: PYREXIA
     Dosage: 1 DF, QOD
     Route: 048
  3. IBUPROFEN [Concomitant]
     Indication: HEADACHE
  4. IBUPROFEN [Concomitant]
     Indication: PREMEDICATION
  5. CAPTOPRIL [Concomitant]
     Indication: HYPERTENSION
     Dosage: 50 MG, QD
     Route: 048

REACTIONS (3)
  - Somnolence [Recovering/Resolving]
  - Headache [Recovered/Resolved]
  - Pyrexia [Recovered/Resolved]
